FAERS Safety Report 20123937 (Version 2)
Quarter: 2021Q4

REPORT INFORMATION
  Report Type: Spontaneous
  Country: GR (occurrence: GR)
  Receive Date: 20211129
  Receipt Date: 20211209
  Transmission Date: 20220303
  Serious: Yes (Other)
  Sender: FDA-Public Use
  Company Number: GR-HBP-2021GR023957

PATIENT
  Age: 82 Year
  Sex: Male

DRUGS (4)
  1. AKYNZEO [Suspect]
     Active Substance: NETUPITANT\PALONOSETRON HYDROCHLORIDE
     Indication: Prophylaxis of nausea and vomiting
     Dosage: 1 DOSAGE FORM, QD
     Route: 048
     Dates: start: 20211118, end: 20211118
  2. ERYTHROPOIETIN [Concomitant]
     Active Substance: ERYTHROPOIETIN
     Indication: Prophylaxis
     Dosage: UNK, UNKNOWN
     Route: 065
  3. MANYPER [Concomitant]
     Indication: Hypertension
     Dosage: UNK, UNKNOWN
     Route: 065
  4. VEFRON [Concomitant]
     Indication: Antiemetic supportive care
     Dosage: UNK, UNKNOWN
     Route: 065
     Dates: start: 20211118, end: 20211118

REACTIONS (7)
  - Tremor [Recovered/Resolved]
  - Muscle spasticity [Recovered/Resolved]
  - Dysphonia [Recovered/Resolved]
  - Gait disturbance [Recovered/Resolved]
  - Blood sodium decreased [Recovered/Resolved]
  - Blood pressure decreased [Recovered/Resolved]
  - Off label use [Unknown]

NARRATIVE: CASE EVENT DATE: 20211118
